FAERS Safety Report 11740224 (Version 2)
Quarter: 2015Q4

REPORT INFORMATION
  Report Type: Spontaneous
  Country: US (occurrence: US)
  Receive Date: 20151110
  Receipt Date: 20151120
  Transmission Date: 20160304
  Serious: No
  Sender: FDA-Public Use
  Company Number: US-ELI_LILLY_AND_COMPANY-US201205001980

PATIENT
  Age: 58 Year
  Sex: Female

DRUGS (1)
  1. FORTEO [Suspect]
     Active Substance: TERIPARATIDE
     Indication: OSTEOPOROSIS
     Dosage: 20 UG, QD
     Route: 065
     Dates: end: 201205

REACTIONS (13)
  - Lethargy [Unknown]
  - Anxiety [Not Recovered/Not Resolved]
  - Fatigue [Unknown]
  - Heart rate increased [Not Recovered/Not Resolved]
  - Blood pressure increased [Unknown]
  - Malaise [Unknown]
  - Feeling abnormal [Unknown]
  - Memory impairment [Unknown]
  - Somnolence [Unknown]
  - Palpitations [Unknown]
  - Headache [Unknown]
  - Intentional product misuse [Unknown]
  - Depressed mood [Unknown]

NARRATIVE: CASE EVENT DATE: 201205
